FAERS Safety Report 7559497-0 (Version None)
Quarter: 2011Q2

REPORT INFORMATION
  Report Type: 
  Country: None (occurrence: None)
  Receive Date: 20110621
  Receipt Date: 20110607
  Transmission Date: 20111010
  Serious: Yes (Other)
  Sender: FDA-Public Use
  Company Number: US-JNJFOC-20110307712

PATIENT
  Sex: Male
  Weight: 102.06 kg

DRUGS (7)
  1. REMICADE [Suspect]
     Dosage: 2ND INFUSION
     Route: 042
     Dates: start: 20101230
  2. REMICADE [Suspect]
     Route: 042
     Dates: start: 20110124
  3. REMICADE [Suspect]
     Indication: COLITIS ULCERATIVE
     Route: 042
     Dates: start: 20101213
  4. LIALDA [Concomitant]
     Route: 065
  5. VARICELLA-ZOSTER IMMUNE GLOBULIN (HUMAN) [Concomitant]
  6. PREDNISONE [Concomitant]
     Route: 065
  7. MERCAPTOPURINE [Concomitant]
     Route: 065

REACTIONS (1)
  - HENOCH-SCHONLEIN PURPURA [None]
